FAERS Safety Report 15241618 (Version 1)
Quarter: 2018Q4

REPORT INFORMATION
  Report Type: Spontaneous
  Country: FR (occurrence: FR)
  Receive Date: 20180805
  Receipt Date: 20180805
  Transmission Date: 20190204
  Serious: Yes (Hospitalization, Other)
  Sender: FDA-Public Use
  Company Number: PHHY2018FR064654

PATIENT
  Age: 36 Year
  Sex: Female

DRUGS (4)
  1. PARACETAMOL [Suspect]
     Active Substance: ACETAMINOPHEN
     Indication: SCIATICA
     Dosage: UNK
     Route: 048
     Dates: start: 201804, end: 20180710
  2. SKENAN [Suspect]
     Active Substance: MORPHINE SULFATE
     Indication: SCIATICA
     Dosage: UNK
     Route: 048
     Dates: start: 201804, end: 20180710
  3. ACTISKENAN [Suspect]
     Active Substance: MORPHINE SULFATE
     Indication: SCIATICA
     Dosage: UNK
     Route: 048
     Dates: start: 201804, end: 20180710
  4. VOLTARENE (DICLOFENAC SODIUM) [Suspect]
     Active Substance: DICLOFENAC SODIUM
     Indication: SCIATICA
     Dosage: INCONNUE
     Route: 048
     Dates: start: 201806, end: 20180702

REACTIONS (1)
  - Mixed liver injury [Not Recovered/Not Resolved]

NARRATIVE: CASE EVENT DATE: 201807
